FAERS Safety Report 22088502 (Version 1)
Quarter: 2023Q1

REPORT INFORMATION
  Report Type: Spontaneous
  Country: US (occurrence: US)
  Receive Date: 20230313
  Receipt Date: 20230313
  Transmission Date: 20230417
  Serious: Yes (Other)
  Sender: FDA-Public Use
  Company Number: US-MYLANLABS-2023M1024222

PATIENT
  Age: 64 Year
  Sex: Male

DRUGS (9)
  1. MESALAMINE [Suspect]
     Active Substance: MESALAMINE
     Indication: Colitis ulcerative
     Dosage: UNK
     Route: 065
  2. INFLIXIMAB [Suspect]
     Active Substance: INFLIXIMAB
     Indication: Colitis ulcerative
     Dosage: UNK
     Route: 065
  3. GOLIMUMAB [Suspect]
     Active Substance: GOLIMUMAB
     Indication: Colitis ulcerative
     Dosage: UNK
     Route: 065
  4. VEDOLIZUMAB [Suspect]
     Active Substance: VEDOLIZUMAB
     Indication: Colitis ulcerative
     Dosage: UNK
     Route: 065
  5. USTEKINUMAB [Suspect]
     Active Substance: USTEKINUMAB
     Indication: Colitis ulcerative
     Dosage: UNK
     Route: 065
  6. OZANIMOD [Concomitant]
     Active Substance: OZANIMOD
     Indication: Colitis ulcerative
     Dosage: 0.23 MILLIGRAM, QD, ON DAYS 1-4
     Route: 065
     Dates: start: 202203
  7. OZANIMOD [Concomitant]
     Active Substance: OZANIMOD
     Dosage: 0.46 MILLIGRAM, QD, ON DAYS 5-7
     Route: 065
  8. OZANIMOD [Concomitant]
     Active Substance: OZANIMOD
     Dosage: 0.92 MILLIGRAM, QD, ON DAY 8 AND THEREAFTER
     Route: 065
  9. PREDNISONE [Concomitant]
     Active Substance: PREDNISONE
     Indication: Colitis ulcerative
     Dosage: 40 MILLIGRAM
     Route: 065
     Dates: start: 202203

REACTIONS (1)
  - Drug ineffective [Unknown]
